FAERS Safety Report 7946267-4 (Version None)
Quarter: 2011Q4

REPORT INFORMATION
  Report Type: 
  Country: None (occurrence: None)
  Receive Date: 20111129
  Receipt Date: 20111122
  Transmission Date: 20120403
  Serious: Yes (Death, Hospitalization)
  Sender: FDA-Public Use
  Company Number: JP-ROCHE-800211

PATIENT
  Age: 59 Year
  Sex: Male

DRUGS (19)
  1. FLUOROURACIL [Concomitant]
     Dosage: ROUTE: INTRAVENOUS BOLUS NOTE: DOSAGE IS UNCERTAIN.
     Route: 042
  2. LEVOLEUCOVORIN CALCIUM [Concomitant]
     Dosage: NOTE: DOSAGE IS UNCERTAIN.
     Route: 041
     Dates: start: 20090101, end: 20090101
  3. IRINOTECAN HYDROCHLORIDE [Concomitant]
     Dosage: NOTE: DOSAGE IS UNCERTAIN.
     Route: 041
     Dates: start: 20080201, end: 20080101
  4. AVASTIN [Suspect]
     Dosage: NOTE: DOSAGE IS UNCERTAIN.
     Route: 041
     Dates: start: 20081201, end: 20090101
  5. FLUOROURACIL [Concomitant]
     Dosage: ROUTE: INTRAVENOUS DRIP NOTE: DOSAGE IS UNCERTAIN.
     Route: 042
  6. FLUOROURACIL [Concomitant]
     Dosage: ROUTE: INTRAVENOUS BOLUS NOTE: DOSAGE IS UNCERTAIN.
     Route: 042
     Dates: start: 20081201, end: 20090101
  7. IRINOTECAN HYDROCHLORIDE [Concomitant]
     Dosage: NOTE: DOSAGE IS UNCERTAIN.
     Route: 041
     Dates: start: 20090101, end: 20090101
  8. AVASTIN [Suspect]
     Indication: RECTAL CANCER METASTATIC
     Dosage: NOTE: DOSAGE IS UNCERTAIN.
     Route: 041
     Dates: start: 20080201, end: 20080101
  9. AVASTIN [Suspect]
     Dosage: NOTE: DOSAGE IS UNCERTAIN.
     Route: 041
     Dates: start: 20090101, end: 20090101
  10. OXALIPLATIN [Concomitant]
     Dosage: NOTE: DOSAGE IS UNCERTAIN.
     Route: 041
     Dates: start: 20080101, end: 20080101
  11. FLUOROURACIL [Concomitant]
     Dosage: ROUTE: INTRAVENOUS BOLUS NOTE: DOSAGE IS UNCERTAIN.
     Route: 042
     Dates: start: 20080101, end: 20080101
  12. FLUOROURACIL [Concomitant]
     Dosage: ROUTE: INTRAVENOUS BOLUS NOTE: DOSAGE IS UNCERTAIN.
     Route: 042
     Dates: start: 20090101, end: 20090101
  13. FLUOROURACIL [Concomitant]
     Dosage: ROUTE: INTRAVENOUS DRIP NOTE: DOSAGE IS UNCERTAIN.
     Route: 042
     Dates: start: 20081201, end: 20090101
  14. LEVOLEUCOVORIN CALCIUM [Concomitant]
     Dosage: NOTE: DOSAGE IS UNCERTAIN.
     Route: 041
     Dates: start: 20081201, end: 20090101
  15. FLUOROURACIL [Concomitant]
     Dosage: ROUTE: INTRAVENOUS DRIP NOTE: DOSAGE IS UNCERTAIN.
     Route: 042
     Dates: start: 20090101, end: 20090101
  16. FLUOROURACIL [Concomitant]
     Dosage: ROUTE: INTRAVENOUS DRIP NOTE: DOSAGE IS UNCERTAIN.
     Route: 042
     Dates: start: 20080101, end: 20080101
  17. LEVOLEUCOVORIN CALCIUM [Concomitant]
     Dosage: NOTE: DOSAGE IS UNCERTAIN.
     Route: 041
  18. OXALIPLATIN [Concomitant]
     Dosage: NOTE: DOSAGE IS UNCERTAIN.
     Route: 041
  19. LEVOLEUCOVORIN CALCIUM [Concomitant]
     Dosage: NOTE: DOSAGE IS UNCERTAIN.
     Route: 041
     Dates: start: 20080101, end: 20080101

REACTIONS (3)
  - BONE MARROW FAILURE [None]
  - DISEASE PROGRESSION [None]
  - MECHANICAL ILEUS [None]
